FAERS Safety Report 4701974-1 (Version None)
Quarter: 2005Q2

REPORT INFORMATION
  Report Type: 
  Country: None (occurrence: None)
  Receive Date: 20050628
  Receipt Date: 20050315
  Transmission Date: 20051028
  Serious: Yes (Hospitalization, Disabling)
  Sender: FDA-Public Use
  Company Number: US-MERCK-0503USA03178

PATIENT
  Age: 32 Year
  Sex: Female

DRUGS (4)
  1. VIOXX [Suspect]
     Indication: RHEUMATOID ARTHRITIS
     Route: 048
     Dates: start: 20010101, end: 20040930
  2. VIOXX [Suspect]
     Indication: INTERVERTEBRAL DISC PROTRUSION
     Route: 048
     Dates: start: 20010101, end: 20040930
  3. FLEXERIL [Concomitant]
     Indication: PAIN
     Route: 048
  4. [THERAPY UNSPECIFIED] [Concomitant]
     Route: 065

REACTIONS (27)
  - ANXIETY [None]
  - BLINDNESS [None]
  - BLOOD CHOLESTEROL INCREASED [None]
  - CEREBRAL HAEMORRHAGE [None]
  - CEREBRAL VENOUS THROMBOSIS [None]
  - CEREBROVASCULAR ACCIDENT [None]
  - CHOLECYSTECTOMY [None]
  - COAGULOPATHY [None]
  - CYSTITIS [None]
  - DEEP VEIN THROMBOSIS [None]
  - DEPRESSION [None]
  - DISTURBANCE IN ATTENTION [None]
  - DIZZINESS [None]
  - DYSPEPSIA [None]
  - EYE HAEMORRHAGE [None]
  - FIBROMYALGIA [None]
  - GALLBLADDER DISORDER [None]
  - GENERALISED ANXIETY DISORDER [None]
  - HAEMORRHAGE [None]
  - HEADACHE [None]
  - HYPERTENSION [None]
  - KIDNEY INFECTION [None]
  - NERVE INJURY [None]
  - OEDEMA PERIPHERAL [None]
  - PANIC DISORDER [None]
  - THROMBOSIS [None]
  - TRANSIENT ISCHAEMIC ATTACK [None]
